FAERS Safety Report 9352220 (Version 2)
Quarter: 2013Q3

REPORT INFORMATION
  Report Type: Spontaneous
  Country: IT (occurrence: IT)
  Receive Date: 20130617
  Receipt Date: 20130912
  Transmission Date: 20140515
  Serious: Yes (Hospitalization)
  Sender: FDA-Public Use
  Company Number: IT-ROXANE LABORATORIES, INC.-2013-RO-00959RO

PATIENT
  Age: 78 Year
  Sex: Female

DRUGS (1)
  1. DIGOXIN [Suspect]

REACTIONS (9)
  - Stress cardiomyopathy [Recovered/Resolved]
  - Toxicity to various agents [Recovered/Resolved]
  - Atrial fibrillation [Recovered/Resolved]
  - Bundle branch block right [Recovered/Resolved]
  - Renal failure acute [Recovered/Resolved]
  - Hyperkalaemia [Recovered/Resolved]
  - Hyponatraemia [Recovered/Resolved]
  - Bradyarrhythmia [Recovered/Resolved]
  - Blood catecholamines increased [Recovered/Resolved]
